FAERS Safety Report 9137951 (Version 1)
Quarter: 2013Q1

REPORT INFORMATION
  Report Type: Spontaneous
  Country: US (occurrence: US)
  Receive Date: 20130304
  Receipt Date: 20130304
  Transmission Date: 20140127
  Serious: No
  Sender: FDA-Public Use
  Company Number: US-ABBOTT-11P-163-0878145-00

PATIENT
  Age: 76 Year
  Sex: Male
  Weight: 68.1 kg

DRUGS (1)
  1. ANDROGEL 1% [Suspect]
     Indication: BLOOD TESTOSTERONE DECREASED
     Dosage: ONE PACKET PER DAY
     Route: 061
     Dates: start: 2011

REACTIONS (2)
  - Prostatic specific antigen increased [Unknown]
  - Prostatic specific antigen increased [Not Recovered/Not Resolved]
